FAERS Safety Report 7769211-1 (Version None)
Quarter: 2011Q3

REPORT INFORMATION
  Report Type: 
  Country: None (occurrence: None)
  Receive Date: 20110922
  Receipt Date: 20110919
  Transmission Date: 20111222
  Serious: Yes (Death, Hospitalization, Other)
  Sender: FDA-Public Use
  Company Number: FR-ROCHE-764823

PATIENT
  Sex: Male
  Weight: 90 kg

DRUGS (7)
  1. BEVACIZUMAB [Suspect]
     Dosage: PERMANENTLY DISCONTINUED
     Route: 065
  2. ALIMTA [Suspect]
     Dosage: FREQUENCY:3 WEEKS
     Route: 042
     Dates: start: 20110225, end: 20110408
  3. OXAZEPAM [Concomitant]
     Indication: ANXIOLYTIC THERAPY
     Dosage: DOSE 10 DAILY
     Route: 048
     Dates: start: 20101126, end: 20110408
  4. PREDNISONE [Concomitant]
     Indication: PAIN
     Dosage: DAILY
     Route: 048
     Dates: start: 20101126, end: 20110408
  5. SPECIAFOLDINE [Concomitant]
     Indication: PREMEDICATION
     Route: 048
     Dates: start: 20101105, end: 20110408
  6. MS CONTIN [Concomitant]
     Indication: ANALGESIC THERAPY
     Route: 048
  7. ACETAMINOPHEN [Concomitant]
     Indication: PAIN
     Route: 048
     Dates: start: 20101126, end: 20110408

REACTIONS (3)
  - ISCHAEMIC STROKE [None]
  - ANEURYSM [None]
  - DEEP VEIN THROMBOSIS [None]
